FAERS Safety Report 24129566 (Version 2)
Quarter: 2024Q3

REPORT INFORMATION
  Report Type: Spontaneous
  Country: RO (occurrence: RO)
  Receive Date: 20240724
  Receipt Date: 20240809
  Transmission Date: 20241017
  Serious: Yes (Other)
  Sender: ELI LILLY AND CO
  Company Number: RO-ELI_LILLY_AND_COMPANY-RO202402002813

PATIENT
  Age: 65 Year
  Sex: Female
  Weight: 41 kg

DRUGS (1)
  1. OLUMIANT [Suspect]
     Active Substance: BARICITINIB
     Indication: Rheumatoid arthritis
     Dosage: 4 MG, DAILY
     Route: 048
     Dates: start: 2019

REACTIONS (9)
  - Weight decreased [Not Recovered/Not Resolved]
  - Dysphagia [Not Recovered/Not Resolved]
  - Feeding disorder [Unknown]
  - Tinnitus [Unknown]
  - Pain [Unknown]
  - Blood cholesterol increased [Unknown]
  - Infection [Unknown]
  - Herpes zoster [Unknown]
  - Skin disorder [Unknown]

NARRATIVE: CASE EVENT DATE: 20220101
